FAERS Safety Report 7732774-6 (Version None)
Quarter: 2011Q3

REPORT INFORMATION
  Report Type: 
  Country: None (occurrence: None)
  Receive Date: 20110901
  Receipt Date: 20110901
  Transmission Date: 20111222
  Serious: No
  Sender: FDA-Public Use
  Company Number: None

PATIENT
  Sex: Male

DRUGS (1)
  1. STELARA [Suspect]
     Indication: PSORIASIS
     Dosage: 45MG Q80DAYS SUBCUTANEOUSLY
     Route: 058
     Dates: start: 20110120, end: 20110801

REACTIONS (4)
  - PSORIATIC ARTHROPATHY [None]
  - OEDEMA PERIPHERAL [None]
  - GAIT DISTURBANCE [None]
  - FOOT FRACTURE [None]
